FAERS Safety Report 23297058 (Version 1)
Quarter: 2023Q4

REPORT INFORMATION
  Report Type: Spontaneous
  Country: GB (occurrence: GB)
  Receive Date: 20231214
  Receipt Date: 20231214
  Transmission Date: 20240109
  Serious: Yes (Hospitalization)
  Sender: FDA-Public Use
  Company Number: None

PATIENT
  Age: 50 Year
  Sex: Male
  Weight: 82 kg

DRUGS (1)
  1. METHYLPREDNISOLONE [Suspect]
     Active Substance: METHYLPREDNISOLONE
     Indication: Osteoarthritis
     Dosage: 160 MG
     Dates: start: 20230302

REACTIONS (4)
  - Confusional state [Recovered/Resolved]
  - Hyperglycaemia [Unknown]
  - Polydipsia [Unknown]
  - Insomnia [Unknown]

NARRATIVE: CASE EVENT DATE: 20230401
